FAERS Safety Report 4397958-6 (Version None)
Quarter: 2004Q3

REPORT INFORMATION
  Report Type: 
  Country: None (occurrence: None)
  Receive Date: 20040713
  Receipt Date: 20040630
  Transmission Date: 20050211
  Serious: Yes (Hospitalization)
  Sender: FDA-Public Use
  Company Number: 2010247

PATIENT
  Age: 70 Year
  Sex: Male
  Weight: 64.8644 kg

DRUGS (2)
  1. VIOXX [Suspect]
     Indication: NEOPLASM PROPHYLAXIS
     Dosage: 25 MG/DAILY/PO
     Route: 048
     Dates: start: 20031223, end: 20040514
  2. ASPIRIN [Concomitant]

REACTIONS (4)
  - COLITIS [None]
  - HAEMOGLOBIN DECREASED [None]
  - SEPSIS [None]
  - TACHYCARDIA [None]
